FAERS Safety Report 11844688 (Version 23)
Quarter: 2017Q1

REPORT INFORMATION
  Report Type: Report from Study
  Country: CA (occurrence: CA)
  Receive Date: 20151217
  Receipt Date: 20170322
  Transmission Date: 20170428
  Serious: Yes (Other)
  Sender: FDA-Public Use
  Company Number: CA-ROCHE-1405584

PATIENT
  Age: 44 Year
  Sex: Female
  Weight: 87 kg

DRUGS (16)
  1. ACTEMRA [Suspect]
     Active Substance: TOCILIZUMAB
     Indication: RHEUMATOID ARTHRITIS
     Route: 042
     Dates: start: 20130725
  2. VITAMIN B12 [Concomitant]
     Active Substance: CYANOCOBALAMIN
  3. ACTEMRA [Suspect]
     Active Substance: TOCILIZUMAB
     Route: 042
     Dates: start: 20160617
  4. MELOXICAM. [Concomitant]
     Active Substance: MELOXICAM
     Route: 065
  5. ACTEMRA [Suspect]
     Active Substance: TOCILIZUMAB
     Route: 042
     Dates: start: 20151105
  6. ACTEMRA [Suspect]
     Active Substance: TOCILIZUMAB
     Route: 042
     Dates: start: 20160512
  7. LEUCOVORIN. [Concomitant]
     Active Substance: LEUCOVORIN
     Route: 065
  8. FENTANYL. [Concomitant]
     Active Substance: FENTANYL
     Route: 062
  9. PREDNISONE. [Concomitant]
     Active Substance: PREDNISONE
     Dosage: RECENTLY STOPPED
     Route: 065
  10. ACTEMRA [Suspect]
     Active Substance: TOCILIZUMAB
     Route: 042
     Dates: start: 20161130
  11. METHOTREXATE. [Concomitant]
     Active Substance: METHOTREXATE
     Route: 065
  12. ACTEMRA [Suspect]
     Active Substance: TOCILIZUMAB
     Route: 042
     Dates: start: 20140715
  13. ACTEMRA [Suspect]
     Active Substance: TOCILIZUMAB
     Route: 042
     Dates: start: 20150512
  14. ACTEMRA [Suspect]
     Active Substance: TOCILIZUMAB
     Indication: RHEUMATOID ARTHRITIS
     Dosage: DISCONTINUED ON AN UNKNOWN DATE
     Route: 058
     Dates: start: 20140921
  15. CYMBALTA [Concomitant]
     Active Substance: DULOXETINE HYDROCHLORIDE
     Route: 065
  16. OXYCONTIN [Concomitant]
     Active Substance: OXYCODONE HYDROCHLORIDE

REACTIONS (42)
  - Joint swelling [Not Recovered/Not Resolved]
  - Thirst [Unknown]
  - Fatigue [Not Recovered/Not Resolved]
  - Dyspnoea [Unknown]
  - Pain [Not Recovered/Not Resolved]
  - Inflammation [Not Recovered/Not Resolved]
  - Catheter site swelling [Unknown]
  - Abdominal pain upper [Not Recovered/Not Resolved]
  - Obesity [Unknown]
  - Arthralgia [Unknown]
  - Joint stiffness [Unknown]
  - Swelling [Unknown]
  - Injection site extravasation [Unknown]
  - Blood pressure systolic increased [Unknown]
  - Overweight [Unknown]
  - Diarrhoea [Not Recovered/Not Resolved]
  - Tooth disorder [Unknown]
  - Infusion site swelling [Unknown]
  - Eye pain [Not Recovered/Not Resolved]
  - Dyskinesia [Unknown]
  - Drug ineffective [Unknown]
  - Drug effect decreased [Unknown]
  - Incorrect dose administered [Unknown]
  - Memory impairment [Not Recovered/Not Resolved]
  - Vision blurred [Not Recovered/Not Resolved]
  - Weight increased [Recovering/Resolving]
  - Bone swelling [Not Recovered/Not Resolved]
  - Oropharyngeal pain [Not Recovered/Not Resolved]
  - Malaise [Not Recovered/Not Resolved]
  - Pyrexia [Not Recovered/Not Resolved]
  - Weight decreased [Unknown]
  - Arthropod bite [Unknown]
  - Device dislocation [Not Recovered/Not Resolved]
  - Adenoma benign [Unknown]
  - Nausea [Not Recovered/Not Resolved]
  - Fatigue [Not Recovered/Not Resolved]
  - Throat tightness [Unknown]
  - Muscle spasms [Unknown]
  - Hyperhidrosis [Not Recovered/Not Resolved]
  - Rhinorrhoea [Not Recovered/Not Resolved]
  - Dizziness [Not Recovered/Not Resolved]
  - Palpitations [Not Recovered/Not Resolved]

NARRATIVE: CASE EVENT DATE: 2015
